FAERS Safety Report 10553649 (Version 1)
Quarter: 2014Q4

REPORT INFORMATION
  Report Type: Spontaneous
  Country: US (occurrence: None)
  Receive Date: 20141029
  Receipt Date: 20141029
  Transmission Date: 20150529
  Serious: No
  Sender: FDA-Public Use
  Company Number: None

PATIENT
  Age: 59 Year
  Sex: Male
  Weight: 69.1 kg

DRUGS (6)
  1. METOCLOPRAMIDE (REGLAN) [Concomitant]
     Active Substance: METOCLOPRAMIDE HYDROCHLORIDE
  2. SULFACETAMIDE (BLEPH-10/SULAMYD) [Concomitant]
  3. REVLIMID [Suspect]
     Active Substance: LENALIDOMIDE
     Dosage: 15MG, QM-F X21/28D, ORALLY
     Route: 048
     Dates: start: 201011
  4. SULFACETAMIDE-PREDNISOLONE (BLEPHAMIDE S.O.P) [Concomitant]
  5. LOVASTATIN (MEVACOR) [Concomitant]
  6. FAMOTIDINE (PEPCID) [Concomitant]

REACTIONS (1)
  - Neutropenia [None]

NARRATIVE: CASE EVENT DATE: 20140923
